FAERS Safety Report 5268305-2 (Version None)
Quarter: 2007Q1

REPORT INFORMATION
  Report Type: 
  Country: None (occurrence: None)
  Receive Date: 20070319
  Receipt Date: 20070312
  Transmission Date: 20070707
  Serious: Yes (Death, Hospitalization)
  Sender: FDA-Public Use
  Company Number: PHBS2007BR02045

PATIENT
  Age: 87 Year
  Sex: Male

DRUGS (3)
  1. EXELON [Suspect]
     Indication: DEMENTIA ALZHEIMER'S TYPE
     Dosage: 1.5 MG, Q12H
     Route: 048
  2. REMERON [Concomitant]
     Indication: AGITATION
     Dosage: UP TO 45 MG/DAY AS NEEDED
     Route: 048
  3. RIVOTRIL [Concomitant]
     Indication: AGITATION
     Dosage: 4 TO 5 DROPS DAILY
     Route: 048

REACTIONS (4)
  - ASTHENIA [None]
  - GENERAL PHYSICAL HEALTH DETERIORATION [None]
  - PNEUMONIA [None]
  - PRODUCTIVE COUGH [None]
